FAERS Safety Report 8861904 (Version 2)
Quarter: 2012Q4

REPORT INFORMATION
  Report Type: 
  Country: US (occurrence: US)
  Receive Date: 20121025
  Receipt Date: 20121207
  Transmission Date: 20130627
  Serious: No
  Sender: FDA-Public Use
  Company Number: US-009507513-1210USA010544

PATIENT
  Age: 27 Year
  Sex: Female
  Weight: 63.39 kg

DRUGS (1)
  1. IMPLANON [Suspect]
     Indication: CONTRACEPTION
     Dosage: every 3 years
     Route: 059
     Dates: start: 200706

REACTIONS (3)
  - Chest pain [Unknown]
  - Chest pain [Unknown]
  - Incorrect drug administration duration [Unknown]
